FAERS Safety Report 19028103 (Version 1)
Quarter: 2021Q1

REPORT INFORMATION
  Report Type: Spontaneous
  Country: CA (occurrence: CA)
  Receive Date: 20210318
  Receipt Date: 20210318
  Transmission Date: 20210420
  Serious: Yes (Hospitalization, Other)
  Sender: FDA-Public Use
  Company Number: CA-BAUSCH-BL-2021-008316

PATIENT
  Age: 26 Year
  Sex: Female
  Weight: 80 kg

DRUGS (20)
  1. DIMENHYDRINATE. [Suspect]
     Active Substance: DIMENHYDRINATE
     Indication: PREMEDICATION
     Route: 042
  2. REMICADE [Suspect]
     Active Substance: INFLIXIMAB
     Indication: CHRONIC DISEASE
     Route: 042
  3. ZOPICLONE [Suspect]
     Active Substance: ZOPICLONE
     Indication: PRODUCT USED FOR UNKNOWN INDICATION
     Route: 048
  4. BETAMETHASONE VALERATE. [Suspect]
     Active Substance: BETAMETHASONE VALERATE
     Indication: PRODUCT USED FOR UNKNOWN INDICATION
     Route: 061
  5. DOXYLAMINE SUCCINATE/PYRIDOXINE HYDROCHLORIDE [Suspect]
     Active Substance: DOXYLAMINE SUCCINATE\PYRIDOXINE HYDROCHLORIDE
     Indication: NAUSEA
     Route: 065
  6. FLOVENT [Suspect]
     Active Substance: FLUTICASONE PROPIONATE
     Route: 048
  7. DIPHENHYDRAMINE. [Suspect]
     Active Substance: DIPHENHYDRAMINE
     Indication: PREMEDICATION
     Route: 048
  8. SALBUTAMOL SULFATE [Suspect]
     Active Substance: ALBUTEROL SULFATE
     Indication: PRODUCT USED FOR UNKNOWN INDICATION
     Route: 065
  9. CITALOPRAM HYDROBROMIDE. [Suspect]
     Active Substance: CITALOPRAM HYDROBROMIDE
     Indication: DEPRESSION
     Route: 065
  10. FLOVENT [Suspect]
     Active Substance: FLUTICASONE PROPIONATE
     Indication: PRODUCT USED FOR UNKNOWN INDICATION
     Route: 048
  11. OXAZEPAM. [Suspect]
     Active Substance: OXAZEPAM
     Indication: PRODUCT USED FOR UNKNOWN INDICATION
     Route: 048
  12. REMICADE [Suspect]
     Active Substance: INFLIXIMAB
     Indication: CROHN^S DISEASE
     Route: 042
  13. IMURAN [Suspect]
     Active Substance: AZATHIOPRINE
     Indication: PRODUCT USED FOR UNKNOWN INDICATION
     Route: 048
  14. IMURAN [Suspect]
     Active Substance: AZATHIOPRINE
     Route: 048
  15. OMEPRAZOLE. [Suspect]
     Active Substance: OMEPRAZOLE
     Indication: PRODUCT USED FOR UNKNOWN INDICATION
     Route: 048
  16. TYLENOL [Suspect]
     Active Substance: ACETAMINOPHEN
     Indication: HEADACHE
     Route: 048
  17. ESOMEPRAZOLE MAGNESIUM TRIHYDRATE [Suspect]
     Active Substance: ESOMEPRAZOLE MAGNESIUM
     Indication: PRODUCT USED FOR UNKNOWN INDICATION
     Route: 048
  18. TORADOL [Suspect]
     Active Substance: KETOROLAC TROMETHAMINE
     Indication: PAIN
     Route: 065
  19. ATENOL [Suspect]
     Active Substance: ATENOLOL
     Indication: PRODUCT USED FOR UNKNOWN INDICATION
     Route: 048
  20. PREDNISONE. [Suspect]
     Active Substance: PREDNISONE
     Indication: HAEMOGLOBIN DECREASED
     Route: 048

REACTIONS (9)
  - Dehydration [Recovered/Resolved]
  - Rectal haemorrhage [Recovered/Resolved]
  - Nausea [Recovered/Resolved]
  - Abdominal pain [Recovered/Resolved]
  - Depression [Recovered/Resolved]
  - Haemoglobin decreased [Recovered/Resolved]
  - Concussion [Recovered/Resolved]
  - Maternal exposure during pregnancy [Recovered/Resolved]
  - Diarrhoea [Recovered/Resolved]
